FAERS Safety Report 6695079-0 (Version None)
Quarter: 2010Q2

REPORT INFORMATION
  Report Type: 
  Country: None (occurrence: None)
  Receive Date: 20100423
  Receipt Date: 20100414
  Transmission Date: 20101027
  Serious: Yes (Other)
  Sender: FDA-Public Use
  Company Number: PHHY2010US23918

PATIENT
  Age: 72 Year
  Sex: Female

DRUGS (6)
  1. RECLAST [Suspect]
     Dosage: 5 MG
  2. RECLAST [Suspect]
     Dosage: UNSPECIFIED
  3. PREDNISONE [Concomitant]
  4. SIMVASTATIN [Concomitant]
  5. LISINOPRIL [Concomitant]
  6. ACIPHEX [Concomitant]

REACTIONS (6)
  - BLOOD POTASSIUM DECREASED [None]
  - GASTROINTESTINAL DISORDER [None]
  - MYALGIA [None]
  - POLYMYALGIA RHEUMATICA [None]
  - PYREXIA [None]
  - WHITE BLOOD CELL COUNT INCREASED [None]
